FAERS Safety Report 25215807 (Version 3)
Quarter: 2025Q3

REPORT INFORMATION
  Report Type: Report from Study
  Country: US (occurrence: US)
  Receive Date: 20250418
  Receipt Date: 20250730
  Transmission Date: 20251021
  Serious: Yes (Other)
  Sender: ABBVIE
  Company Number: US-ABBVIE-6134249

PATIENT
  Age: 62 Year
  Sex: Female

DRUGS (1)
  1. HUMIRA [Suspect]
     Active Substance: ADALIMUMAB
     Indication: Crohn^s disease
     Route: 058
     Dates: start: 20160511

REACTIONS (7)
  - Bone disorder [Not Recovered/Not Resolved]
  - Large intestine polyp [Not Recovered/Not Resolved]
  - Arthralgia [Not Recovered/Not Resolved]
  - Large intestinal stenosis [Unknown]
  - Volvulus [Unknown]
  - Sitting disability [Unknown]
  - Dysstasia [Unknown]
